FAERS Safety Report 19104574 (Version 1)
Quarter: 2021Q2

REPORT INFORMATION
  Report Type: Spontaneous
  Country: US (occurrence: US)
  Receive Date: 20210408
  Receipt Date: 20210408
  Transmission Date: 20210717
  Serious: No
  Sender: FDA-Public Use
  Company Number: US-LUPIN PHARMACEUTICALS INC.-2021-04264

PATIENT
  Sex: Female
  Weight: 74.39 kg

DRUGS (1)
  1. ALBUTEROL SULFATE INHALATION AEROSOL, 90 MCG/ACTUATION [Suspect]
     Active Substance: ALBUTEROL SULFATE
     Indication: DYSPNOEA
     Dosage: UNK UNK, PRN (2 PUFFS INTO LUNGS EVERY 4 HOURS AS NEEDED)

REACTIONS (2)
  - Arthralgia [Unknown]
  - Pain in extremity [Unknown]
